FAERS Safety Report 4743764-X (Version None)
Quarter: 2005Q3

REPORT INFORMATION
  Report Type: 
  Country: None (occurrence: None)
  Receive Date: 20050812
  Receipt Date: 20050805
  Transmission Date: 20060218
  Serious: Yes (Hospitalization)
  Sender: FDA-Public Use
  Company Number: RU-GLAXOSMITHKLINE-B0390378A

PATIENT
  Age: 42 Year
  Sex: Male
  Weight: 80 kg

DRUGS (2)
  1. AUGMENTIN '125' [Suspect]
     Dates: start: 20050418, end: 20050420
  2. OXYMETAZOLINE [Concomitant]
     Route: 045
     Dates: start: 20050418, end: 20050427

REACTIONS (3)
  - DYSPHONIA [None]
  - FACE OEDEMA [None]
  - URTICARIA [None]
